FAERS Safety Report 21020745 (Version 1)
Quarter: 2022Q3

REPORT INFORMATION
  Report Type: Spontaneous
  Country: JP (occurrence: JP)
  Receive Date: 20220629
  Receipt Date: 20220629
  Transmission Date: 20221026
  Serious: Yes (Other)
  Sender: FDA-Public Use
  Company Number: JP-NOVARTISPH-NVSJ2022JP093010

PATIENT
  Age: 33 Year
  Sex: Male

DRUGS (1)
  1. MAYZENT [Suspect]
     Active Substance: SIPONIMOD
     Indication: Multiple sclerosis
     Dosage: UNK
     Route: 048
     Dates: start: 20210318, end: 20210524

REACTIONS (2)
  - Multiple sclerosis [Unknown]
  - Electrocardiogram QT prolonged [Unknown]
